FAERS Safety Report 4500770-8 (Version None)
Quarter: 2004Q4

REPORT INFORMATION
  Report Type: 
  Country: None (occurrence: None)
  Receive Date: 20041112
  Receipt Date: 20041112
  Transmission Date: 20050328
  Serious: Yes (Hospitalization)
  Sender: FDA-Public Use
  Company Number: None

PATIENT
  Age: 76 Year
  Sex: Female
  Weight: 77.1115 kg

DRUGS (1)
  1. VIOXX [Suspect]
     Indication: OSTEOARTHRITIS
     Dosage: 25 MG X 2
     Dates: start: 20040101

REACTIONS (4)
  - CEREBRAL INFARCTION [None]
  - FEEDING DISORDER [None]
  - HEMIPARESIS [None]
  - SPEECH DISORDER [None]
